FAERS Safety Report 11790023 (Version 1)
Quarter: 2015Q4

REPORT INFORMATION
  Report Type: Spontaneous
  Country: IT (occurrence: IT)
  Receive Date: 20151201
  Receipt Date: 20151201
  Transmission Date: 20160305
  Serious: Yes (Hospitalization)
  Sender: FDA-Public Use
  Company Number: IT-BAYER-2015-470880

PATIENT
  Age: 63 Year
  Sex: Male

DRUGS (6)
  1. TORVAST [Concomitant]
     Active Substance: ATORVASTATIN
     Dosage: UNK
  2. TRIATEC [Concomitant]
     Active Substance: RAMIPRIL
     Dosage: UNK
  3. PANTORC [Concomitant]
     Active Substance: PANTOPRAZOLE SODIUM
  4. PLAVIX [Suspect]
     Active Substance: CLOPIDOGREL BISULFATE
     Indication: CORONARY ANGIOPLASTY
     Dosage: DAILY DOSE 75 MG
     Route: 048
     Dates: start: 20150901
  5. SINTROM [Suspect]
     Active Substance: ACENOCOUMAROL
     Indication: CORONARY ANGIOPLASTY
     Dosage: DAILY DOSE 4 MG
     Route: 048
     Dates: start: 20150901
  6. CARDIOASPIRIN [Suspect]
     Active Substance: ASPIRIN
     Indication: CORONARY ANGIOPLASTY
     Dosage: DAILY DOSE 100 MG
     Route: 048
     Dates: start: 20150901

REACTIONS (2)
  - Vascular pseudoaneurysm [Recovered/Resolved]
  - Haematoma [Recovered/Resolved]

NARRATIVE: CASE EVENT DATE: 20150916
